FAERS Safety Report 21652860 (Version 2)
Quarter: 2023Q2

REPORT INFORMATION
  Report Type: Report from Study
  Country: US (occurrence: US)
  Receive Date: 20221128
  Receipt Date: 20230407
  Transmission Date: 20230721
  Serious: No
  Sender: FDA-Public Use
  Company Number: US-ABBVIE-4167724

PATIENT
  Age: 33 Year
  Sex: Female

DRUGS (2)
  1. HUMIRA [Suspect]
     Active Substance: ADALIMUMAB
     Indication: Ankylosing spondylitis
     Dosage: CITRATE FREE?FORM STRENGTH 40 MG
     Route: 058
     Dates: start: 20220818, end: 20220929
  2. HUMIRA [Suspect]
     Active Substance: ADALIMUMAB

REACTIONS (8)
  - Lyme disease [Recovering/Resolving]
  - Ankylosing spondylitis [Unknown]
  - Herpes zoster [Unknown]
  - Sacral pain [Unknown]
  - Arthropod bite [Unknown]
  - Influenza [Unknown]
  - Unevaluable event [Unknown]
  - Ulcer [Unknown]

NARRATIVE: CASE EVENT DATE: 20220929
